FAERS Safety Report 9289009 (Version 2)
Quarter: 2013Q2

REPORT INFORMATION
  Report Type: Spontaneous
  Country: US (occurrence: US)
  Receive Date: 20130514
  Receipt Date: 20130617
  Transmission Date: 20140414
  Serious: Yes (Death, Hospitalization)
  Sender: FDA-Public Use
  Company Number: US-INCYTE CORPORATION-2013IN000930

PATIENT
  Age: 68 Year
  Sex: Female
  Weight: 76.64 kg

DRUGS (5)
  1. JAKAFI [Suspect]
     Indication: LYMPHATIC DISORDER
     Dosage: 15 MG, BID
     Dates: start: 20130321
  2. JAKAFI [Suspect]
     Indication: BLOOD DISORDER
  3. POTASSIUM CHLORIDE [Concomitant]
  4. SEROQUEL [Concomitant]
  5. MECLIZINE [Concomitant]

REACTIONS (2)
  - Death [Fatal]
  - Hospitalisation [Not Recovered/Not Resolved]
